FAERS Safety Report 6254223-X (Version None)
Quarter: 2009Q2

REPORT INFORMATION
  Report Type: 
  Country: None (occurrence: None)
  Receive Date: 20090630
  Receipt Date: 20090630
  Transmission Date: 20091009
  Serious: No
  Sender: FDA-Public Use
  Company Number: None

PATIENT
  Age: 63 Year
  Sex: Male
  Weight: 90.7194 kg

DRUGS (2)
  1. COLDMD RAPID-TABS IOVATE HEALTH SCIENCES USA, INC [Suspect]
     Indication: COUGH
     Dosage: ONE TABLET EVERY 3-4 HOURS PO
     Route: 048
     Dates: start: 20080403, end: 20080405
  2. COLDMD RAPID-TABS IOVATE HEALTH SCIENCES USA, INC [Suspect]
     Indication: NASOPHARYNGITIS
     Dosage: ONE TABLET EVERY 3-4 HOURS PO
     Route: 048
     Dates: start: 20080403, end: 20080405

REACTIONS (2)
  - AGEUSIA [None]
  - ANOSMIA [None]
